FAERS Safety Report 5892414-8 (Version None)
Quarter: 2008Q3

REPORT INFORMATION
  Report Type: 
  Country: None (occurrence: None)
  Receive Date: 20080923
  Receipt Date: 20080910
  Transmission Date: 20090109
  Serious: Yes (Hospitalization)
  Sender: FDA-Public Use
  Company Number: DE-BRISTOL-MYERS SQUIBB COMPANY-14339808

PATIENT
  Age: 70 Year
  Sex: Female
  Weight: 90 kg

DRUGS (3)
  1. ERBITUX [Suspect]
     Indication: COLORECTAL CANCER METASTATIC
     Dosage: 09JUN2008-09JUN2008: 400MG/M2, 1 IN 1 ONCE, IV
     Route: 042
     Dates: start: 20080616, end: 20080804
  2. IRINOTECAN HCL [Suspect]
     Indication: COLORECTAL CANCER METASTATIC
     Route: 042
     Dates: start: 20080609, end: 20080814
  3. RANITIDINE [Concomitant]
     Indication: PREMEDICATION

REACTIONS (2)
  - GENERAL PHYSICAL HEALTH DETERIORATION [None]
  - NAUSEA [None]
